FAERS Safety Report 8153211-6 (Version None)
Quarter: 2012Q1

REPORT INFORMATION
  Report Type: 
  Country: None (occurrence: None)
  Receive Date: 20120221
  Receipt Date: 20120210
  Transmission Date: 20120608
  Serious: Yes (Other)
  Sender: FDA-Public Use
  Company Number: US-JNJFOC-20120206091

PATIENT
  Sex: Male
  Weight: 58.97 kg

DRUGS (7)
  1. CONCERTA [Suspect]
     Route: 048
     Dates: start: 20090101, end: 20110501
  2. ZYRTEC [Concomitant]
     Indication: MULTIPLE ALLERGIES
     Route: 048
     Dates: start: 20000101
  3. METHYLPHENIDATE [Suspect]
     Indication: ATTENTION DEFICIT/HYPERACTIVITY DISORDER
     Route: 048
     Dates: start: 20120101, end: 20120201
  4. CONCERTA [Suspect]
     Route: 048
     Dates: start: 20040101, end: 20090101
  5. CONCERTA [Suspect]
     Route: 048
     Dates: start: 20110701, end: 20120101
  6. CONCERTA [Suspect]
     Indication: ATTENTION DEFICIT/HYPERACTIVITY DISORDER
     Route: 048
     Dates: start: 20120201
  7. METHYLPHENIDATE [Suspect]
     Route: 048
     Dates: start: 20110501, end: 20110701

REACTIONS (4)
  - PSYCHOMOTOR HYPERACTIVITY [None]
  - GRAND MAL CONVULSION [None]
  - DISTURBANCE IN ATTENTION [None]
  - DYSPHEMIA [None]
